FAERS Safety Report 8360641-6 (Version None)
Quarter: 2012Q2

REPORT INFORMATION
  Report Type: 
  Country: None (occurrence: None)
  Receive Date: 20120514
  Receipt Date: 20120514
  Transmission Date: 20120825
  Serious: Yes (Death)
  Sender: FDA-Public Use
  Company Number: None

PATIENT
  Sex: Male
  Weight: 76.9 kg

DRUGS (11)
  1. SORAFENIB 400MG BAYER [Suspect]
     Indication: NEOPLASM MALIGNANT
     Dosage: SORAFENIB, 400MG BID PO
     Route: 048
     Dates: start: 20120315, end: 20120410
  2. MIRTAZAPINE [Concomitant]
  3. ONDANSETRON [Concomitant]
  4. FLUTICASONE PROPIONATE [Concomitant]
  5. HYDROCODONE BITARTRATE + ACETAMINOPHEN [Concomitant]
  6. HYDROCORTISONE [Concomitant]
  7. LORATADINE [Concomitant]
  8. DOXYCYCLINE [Concomitant]
  9. PROCHLORPERAZINE [Concomitant]
  10. LEVOTHYROXINE SODIUM [Concomitant]
  11. BISACODYL [Concomitant]

REACTIONS (2)
  - NEOPLASM MALIGNANT [None]
  - LUNG NEOPLASM MALIGNANT [None]
